FAERS Safety Report 21097028 (Version 5)
Quarter: 2022Q4

REPORT INFORMATION
  Report Type: Report from Study
  Country: US (occurrence: US)
  Receive Date: 20220718
  Receipt Date: 20221012
  Transmission Date: 20230112
  Serious: Yes (Hospitalization)
  Sender: FDA-Public Use
  Company Number: US-JNJFOC-20220726520

PATIENT
  Age: 3 Decade
  Sex: Male
  Weight: 53.572 kg

DRUGS (2)
  1. INFLIXIMAB [Suspect]
     Active Substance: INFLIXIMAB
     Indication: Inflammatory bowel disease
     Route: 041
     Dates: start: 20081212, end: 20110701
  2. ENSPRYNG [SATRALIZUMAB] [Concomitant]

REACTIONS (2)
  - Stoma prolapse [Recovered/Resolved with Sequelae]
  - Gastrointestinal stoma complication [Recovered/Resolved with Sequelae]

NARRATIVE: CASE EVENT DATE: 20220626
